FAERS Safety Report 20399022 (Version 2)
Quarter: 2022Q1

REPORT INFORMATION
  Report Type: Spontaneous
  Country: US (occurrence: US)
  Receive Date: 20220131
  Receipt Date: 20220201
  Transmission Date: 20220423
  Serious: No
  Sender: FDA-Public Use
  Company Number: US-ABBVIE-21K-163-3789989-00

PATIENT
  Sex: Female
  Weight: 56.750 kg

DRUGS (10)
  1. HUMIRA [Suspect]
     Active Substance: ADALIMUMAB
     Indication: Rheumatoid arthritis
     Route: 058
     Dates: start: 201903
  2. DIAZEPAM [Concomitant]
     Active Substance: DIAZEPAM
     Indication: Anxiety
  3. MORPHINE [Concomitant]
     Active Substance: MORPHINE
     Indication: Pain
  4. HYDROXYCHLOROQUINE [Concomitant]
     Active Substance: HYDROXYCHLOROQUINE
     Indication: Product used for unknown indication
  5. PREDNISONE [Concomitant]
     Active Substance: PREDNISONE
     Indication: Product used for unknown indication
  6. LANSOPRAZOLE [Concomitant]
     Active Substance: LANSOPRAZOLE
     Indication: Dyspepsia
  7. HYDROCHLOROTHIAZIDE [Concomitant]
     Active Substance: HYDROCHLOROTHIAZIDE
     Indication: Diuretic therapy
  8. CALCIUM [Concomitant]
     Active Substance: CALCIUM
     Indication: Supplementation therapy
  9. HYDROCODONE [Concomitant]
     Active Substance: HYDROCODONE
     Indication: Pain
  10. COVID-19 VACCINE [Concomitant]
     Indication: COVID-19 immunisation
     Dosage: MODERNA COVID-19 VACCINE
     Route: 030
     Dates: start: 20210214, end: 20210214

REACTIONS (9)
  - Spinal stenosis [Unknown]
  - Intervertebral disc protrusion [Unknown]
  - Weight decreased [Not Recovered/Not Resolved]
  - Hypoaesthesia [Recovered/Resolved]
  - Burning sensation [Recovered/Resolved]
  - Tremor [Recovering/Resolving]
  - Headache [Not Recovered/Not Resolved]
  - Pain in extremity [Not Recovered/Not Resolved]
  - Wrong technique in product usage process [Unknown]

NARRATIVE: CASE EVENT DATE: 20190101
